FAERS Safety Report 13383597 (Version 1)
Quarter: 2017Q1

REPORT INFORMATION
  Report Type: Spontaneous
  Country: SE (occurrence: SE)
  Receive Date: 20170329
  Receipt Date: 20170329
  Transmission Date: 20170429
  Serious: Yes (Other)
  Sender: FDA-Public Use
  Company Number: SE-TEVA-752531ISR

PATIENT
  Age: 17 Year
  Sex: Female

DRUGS (1)
  1. ISOTRETINOIN ACTAVIS [Suspect]
     Active Substance: ISOTRETINOIN
     Indication: ACNE
     Dosage: THE DOSE IS 120-150 MG/KG
     Dates: start: 201609

REACTIONS (2)
  - Skin discolouration [Unknown]
  - Rheumatoid arthritis [Unknown]
